FAERS Safety Report 23585962 (Version 2)
Quarter: 2024Q1

REPORT INFORMATION
  Report Type: Other
  Country: IL (occurrence: None)
  Receive Date: 20240301
  Receipt Date: 20240306
  Transmission Date: 20240409
  Serious: Yes (Death)
  Sender: FDA-Public Use
  Company Number: IL-ROCHE-3517256

PATIENT

DRUGS (2)
  1. RITUXIMAB [Suspect]
     Active Substance: RITUXIMAB
     Indication: Haematological malignancy
     Route: 065
  2. OBINUTUZUMAB [Suspect]
     Active Substance: OBINUTUZUMAB
     Indication: Haematological malignancy
     Route: 065

REACTIONS (1)
  - COVID-19 [Fatal]
